FAERS Safety Report 4466584-2 (Version None)
Quarter: 2004Q3

REPORT INFORMATION
  Report Type: 
  Country: None (occurrence: None)
  Receive Date: 20040917
  Receipt Date: 20040805
  Transmission Date: 20050211
  Serious: No
  Sender: FDA-Public Use
  Company Number: US-JNJFOC-20040802240

PATIENT
  Age: 44 Year
  Sex: Female
  Weight: 58.9676 kg

DRUGS (7)
  1. ORTHO EVRA [Suspect]
     Indication: CONTRACEPTION
     Dosage: 1 DOSE(S), 3 IN 4 WEEK, TRANSDERMAL
     Route: 062
  2. SINGULAIR [Concomitant]
  3. ZYRTEC [Concomitant]
  4. SUDAFED 12 HOUR [Concomitant]
  5. VITAMIN (VITAMINS NOS) [Concomitant]
  6. CALCIUM SUPPLEMENT (CALCIUM) [Concomitant]
  7. FIBER (FIBRE, DIETARY) [Concomitant]

REACTIONS (2)
  - BREAST PAIN [None]
  - BREAST TENDERNESS [None]
